FAERS Safety Report 6311569-4 (Version None)
Quarter: 2009Q3

REPORT INFORMATION
  Report Type: 
  Country: None (occurrence: None)
  Receive Date: 20090817
  Receipt Date: 20090810
  Transmission Date: 20100115
  Serious: Yes (Other)
  Sender: FDA-Public Use
  Company Number: US-BAYER-200912853BCC

PATIENT
  Age: 63 Year
  Sex: Male
  Weight: 98 kg

DRUGS (3)
  1. NEO-SYNEPHRINE REGULAR STRENGTH SPRAY [Suspect]
     Indication: NASAL CONGESTION
     Dosage: CONSUMER USED 1 OR 2 SPRAYS DAILY IN EACH NOSTRIL 4 TO 5 TIMES A DAY.
     Route: 045
     Dates: start: 19890101, end: 20090810
  2. HYDROCHLOROTHIAZIDE [Concomitant]
     Route: 065
  3. AMLODIPINE BESYLATE [Concomitant]
     Route: 065

REACTIONS (2)
  - DRUG DEPENDENCE [None]
  - DYSPNOEA [None]
